FAERS Safety Report 4309480-3 (Version None)
Quarter: 2004Q1

REPORT INFORMATION
  Report Type: 
  Country: None (occurrence: None)
  Receive Date: 20040301
  Receipt Date: 20040223
  Transmission Date: 20041129
  Serious: Yes (Hospitalization)
  Sender: FDA-Public Use
  Company Number: 2004GB00468

PATIENT
  Sex: Female

DRUGS (2)
  1. LIGNOCAINE [Suspect]
     Dates: start: 20001101, end: 20001101
  2. PROCAINE HCL [Concomitant]

REACTIONS (3)
  - CEREBROVASCULAR ACCIDENT [None]
  - PALLOR [None]
  - POST PROCEDURAL COMPLICATION [None]
